FAERS Safety Report 15378338 (Version 1)
Quarter: 2018Q3

REPORT INFORMATION
  Report Type: Spontaneous
  Country: US (occurrence: US)
  Receive Date: 20180913
  Receipt Date: 20180913
  Transmission Date: 20181010
  Serious: Yes (Other)
  Sender: FDA-Public Use
  Company Number: US-BAYER-2018-164840

PATIENT
  Age: 69 Year
  Sex: Female

DRUGS (2)
  1. BAYER LOW DOSE [Suspect]
     Active Substance: ASPIRIN
     Indication: BLOOD CHOLESTEROL INCREASED
  2. BAYER LOW DOSE [Suspect]
     Active Substance: ASPIRIN
     Indication: HYPERTENSION
     Dosage: UNK
     Route: 048
     Dates: start: 2013

REACTIONS (4)
  - Intentional product misuse [Unknown]
  - Coeliac disease [Unknown]
  - Product use in unapproved indication [Unknown]
  - Adverse reaction [Not Recovered/Not Resolved]
